FAERS Safety Report 6160179-0 (Version None)
Quarter: 2009Q2

REPORT INFORMATION
  Report Type: 
  Country: None (occurrence: None)
  Receive Date: 20090420
  Receipt Date: 20090410
  Transmission Date: 20091009
  Serious: Yes (Other)
  Sender: FDA-Public Use
  Company Number: A0779255A

PATIENT
  Sex: Female

DRUGS (3)
  1. WELLBUTRIN SR [Suspect]
     Indication: MENOPAUSAL DEPRESSION
     Dosage: 150MG IN THE MORNING
     Dates: start: 20090201
  2. BUPROPION HCL [Suspect]
     Indication: MENOPAUSAL DEPRESSION
     Dates: start: 20081001, end: 20090201
  3. ACTIVELLA [Concomitant]
     Indication: MENOPAUSE

REACTIONS (3)
  - APHASIA [None]
  - INCREASED APPETITE [None]
  - MEMORY IMPAIRMENT [None]
